FAERS Safety Report 9486487 (Version 1)
Quarter: 2013Q3

REPORT INFORMATION
  Report Type: Spontaneous
  Country: FR (occurrence: FR)
  Receive Date: 20130829
  Receipt Date: 20130829
  Transmission Date: 20140515
  Serious: Yes (Hospitalization)
  Sender: FDA-Public Use
  Company Number: FR-SANOFI-AVENTIS-2013SA084092

PATIENT
  Age: 75 Year
  Sex: Male

DRUGS (7)
  1. RIFADINE [Suspect]
     Indication: SEPSIS
     Route: 065
     Dates: start: 20130117, end: 20130123
  2. GENTALLINE [Suspect]
     Indication: SEPSIS
     Route: 065
     Dates: start: 20130101, end: 20130117
  3. VANCOMYCINE [Suspect]
     Indication: SEPSIS
     Route: 065
     Dates: start: 20130101, end: 20130123
  4. KARDEGIC [Concomitant]
  5. PERMIXON [Concomitant]
  6. XATRAL [Concomitant]
  7. PARIET [Concomitant]

REACTIONS (4)
  - Pancytopenia [Recovered/Resolved]
  - White blood cell count decreased [Recovered/Resolved]
  - Platelet count decreased [Not Recovered/Not Resolved]
  - Haemoglobin decreased [Not Recovered/Not Resolved]
